FAERS Safety Report 9589873 (Version 1)
Quarter: 2013Q4

REPORT INFORMATION
  Report Type: Spontaneous
  Country: US (occurrence: US)
  Receive Date: 20131003
  Receipt Date: 20131003
  Transmission Date: 20140711
  Serious: No
  Sender: FDA-Public Use
  Company Number: US-AMGEN-USASP2012072816

PATIENT
  Sex: Female

DRUGS (6)
  1. ENBREL [Suspect]
     Indication: RHEUMATOID ARTHRITIS
     Dosage: 50 MG, QWK
     Route: 058
  2. SERTRALINE [Concomitant]
     Dosage: 25 MG, UNK
  3. PREDNISON [Concomitant]
     Dosage: 1 MG, UNK
  4. METHOTREXATE [Concomitant]
     Dosage: 2.5 MG, UNK
  5. DIOVAN [Concomitant]
     Dosage: 80 MG, UNK
  6. TRAMADOL HCL [Concomitant]
     Dosage: 50 MG, UNK

REACTIONS (2)
  - Drug hypersensitivity [Not Recovered/Not Resolved]
  - Nasopharyngitis [Recovered/Resolved]
